FAERS Safety Report 7043446-8 (Version None)
Quarter: 2010Q4

REPORT INFORMATION
  Report Type: 
  Country: None (occurrence: None)
  Receive Date: 20101013
  Receipt Date: 20100930
  Transmission Date: 20110411
  Serious: Yes (Hospitalization, Other)
  Sender: FDA-Public Use
  Company Number: DE-MYLANLABS-2009S1003651

PATIENT
  Age: 92 Year
  Sex: Female
  Weight: 85 kg

DRUGS (9)
  1. FUROSEMIDE [Suspect]
     Indication: RENAL FAILURE
     Route: 048
     Dates: end: 20081030
  2. ALDACTONE [Suspect]
     Indication: HYPERTENSION
     Route: 048
  3. CLEXANE [Suspect]
     Indication: PULMONARY EMBOLISM
     Route: 058
     Dates: end: 20081030
  4. ATACAND [Suspect]
     Indication: HYPERTENSION
     Route: 048
  5. ARICEPT [Concomitant]
     Indication: DEMENTIA
     Route: 048
  6. EUNERPAN [Concomitant]
     Indication: DEMENTIA
     Route: 048
  7. NULYTELY [Concomitant]
     Indication: CONSTIPATION
  8. NORVASC [Concomitant]
     Indication: HYPERTENSION
     Route: 048
  9. PANTOPRAZOLE SODIUM [Concomitant]
     Indication: PROPHYLAXIS AGAINST GASTROINTESTINAL ULCER
     Route: 048

REACTIONS (3)
  - HAEMORRHAGE [None]
  - HYPERKALAEMIA [None]
  - HYPONATRAEMIA [None]
